FAERS Safety Report 4294670-9 (Version None)
Quarter: 2004Q1

REPORT INFORMATION
  Report Type: 
  Country: None (occurrence: None)
  Receive Date: 20040213
  Receipt Date: 20040203
  Transmission Date: 20041129
  Serious: Yes (Other)
  Sender: FDA-Public Use
  Company Number: IT-GLAXOSMITHKLINE-B0322323A

PATIENT
  Age: 6 Year
  Sex: Female

DRUGS (5)
  1. ZIDOVUDINE [Suspect]
     Route: 065
     Dates: start: 19890726, end: 19940701
  2. ZIDOVUDINE [Suspect]
     Dates: start: 19960212, end: 19961101
  3. LAMIVUDINE [Concomitant]
     Dates: start: 19970527
  4. DIDANOSINE [Concomitant]
     Route: 065
     Dates: start: 19960212, end: 19961101
  5. DIDANOSINE [Concomitant]
     Route: 065
     Dates: start: 19970527

REACTIONS (1)
  - CONGESTIVE CARDIOMYOPATHY [None]
